FAERS Safety Report 8564920-9 (Version None)
Quarter: 2012Q3

REPORT INFORMATION
  Report Type: 
  Country: None (occurrence: None)
  Receive Date: 20120803
  Receipt Date: 20120801
  Transmission Date: 20120928
  Serious: Yes (Hospitalization)
  Sender: FDA-Public Use
  Company Number: ES-PFIZER INC-2012187476

PATIENT
  Age: 48 Year
  Sex: Female

DRUGS (1)
  1. SUNITINIB MALATE [Suspect]
     Indication: NEUROENDOCRINE CARCINOMA
     Dosage: 50 MG/DAY FOR 4 WEEKS IN EVERY 6 WEEKS.
     Dates: start: 20100201

REACTIONS (1)
  - PERIRENAL HAEMATOMA [None]
